FAERS Safety Report 21032902 (Version 1)
Quarter: 2022Q2

REPORT INFORMATION
  Report Type: Spontaneous
  Country: US (occurrence: None)
  Receive Date: 20220629
  Receipt Date: 20220629
  Transmission Date: 20220721
  Serious: Yes (Other)
  Sender: FDA-Public Use
  Company Number: None

PATIENT
  Age: 8 Year
  Sex: Male
  Weight: 23.4 kg

DRUGS (6)
  1. MIRALAX [Suspect]
     Active Substance: POLYETHYLENE GLYCOL 3350
     Indication: Product used for unknown indication
     Dates: start: 20220609
  2. PEG free diphenhydramine [Concomitant]
  3. ALBUTEROL [Concomitant]
     Active Substance: ALBUTEROL
  4. DEVICE [Concomitant]
     Active Substance: DEVICE
  5. CANNABIDIOL\HERBALS [Concomitant]
     Active Substance: CANNABIDIOL\HERBALS
  6. HERBALS [Concomitant]
     Active Substance: HERBALS

REACTIONS (3)
  - Toxicity to various agents [None]
  - Drug hypersensitivity [None]
  - Asthma [None]

NARRATIVE: CASE EVENT DATE: 20220609
